FAERS Safety Report 16814736 (Version 1)
Quarter: 2019Q4

REPORT INFORMATION
  Report Type: Spontaneous
  Country: US (occurrence: US)
  Receive Date: 20190916
  Receipt Date: 20190916
  Transmission Date: 20200122
  Serious: Yes (Disabling, Congenital Anomaly)
  Sender: FDA-Public Use
  Company Number: None

PATIENT
  Age: 79 Year
  Sex: Male
  Weight: 64.8 kg

DRUGS (9)
  1. AMLODIPINE [Concomitant]
     Active Substance: AMLODIPINE BESYLATE
  2. ALLEGRA [Concomitant]
     Active Substance: FEXOFENADINE HYDROCHLORIDE
  3. MONTELUKAST [Concomitant]
     Active Substance: MONTELUKAST SODIUM
  4. LEVOFLOXACIN. [Suspect]
     Active Substance: LEVOFLOXACIN
     Indication: CHRONIC OBSTRUCTIVE PULMONARY DISEASE
     Dosage: ?          QUANTITY:1 TABLET(S);?
     Route: 048
     Dates: start: 20190903, end: 20190913
  5. LEVOFLOXACIN. [Suspect]
     Active Substance: LEVOFLOXACIN
     Indication: ASTHMA
     Dosage: ?          QUANTITY:1 TABLET(S);?
     Route: 048
     Dates: start: 20190903, end: 20190913
  6. LOSARTAN. [Concomitant]
     Active Substance: LOSARTAN
  7. DULOXETINE. [Concomitant]
     Active Substance: DULOXETINE
  8. PREDNISONE. [Suspect]
     Active Substance: PREDNISONE
  9. 81 MG ASA [Concomitant]

REACTIONS (7)
  - Disturbance in attention [None]
  - Faeces discoloured [None]
  - Muscular weakness [None]
  - Gait disturbance [None]
  - Dizziness [None]
  - Memory impairment [None]
  - Dysstasia [None]

NARRATIVE: CASE EVENT DATE: 20190903
